FAERS Safety Report 8133357-9 (Version None)
Quarter: 2012Q1

REPORT INFORMATION
  Report Type: 
  Country: None (occurrence: None)
  Receive Date: 20120213
  Receipt Date: 20120202
  Transmission Date: 20120608
  Serious: Yes (Death)
  Sender: FDA-Public Use
  Company Number: AU-ACTELION-A-CH2012-60601

PATIENT
  Sex: Male

DRUGS (1)
  1. TRACLEER [Suspect]
     Indication: PRINZMETAL ANGINA
     Dosage: 62.5 MG, BID
     Route: 048
     Dates: start: 20090219

REACTIONS (1)
  - DEATH [None]
